FAERS Safety Report 8384570-7 (Version None)
Quarter: 2012Q2

REPORT INFORMATION
  Report Type: 
  Country: None (occurrence: None)
  Receive Date: 20120524
  Receipt Date: 20120522
  Transmission Date: 20120825
  Serious: Yes (Other)
  Sender: FDA-Public Use
  Company Number: CN-JNJFOC-20110601093

PATIENT
  Sex: Female

DRUGS (3)
  1. MICONAZOLE NITRATE [Suspect]
     Indication: VULVOVAGINAL PRURITUS
     Route: 067
     Dates: start: 20110520, end: 20110522
  2. CHINESE DRUG [Concomitant]
     Indication: WEIGHT LOSS DIET
     Route: 048
     Dates: start: 20110519, end: 20110526
  3. MICONAZOLE NITRATE [Suspect]
     Route: 067

REACTIONS (6)
  - DRY MOUTH [None]
  - ASTHENOPIA [None]
  - DIZZINESS [None]
  - MENTAL DISORDER [None]
  - EYE MOVEMENT DISORDER [None]
  - HEADACHE [None]
